FAERS Safety Report 6793379-7 (Version None)
Quarter: 2010Q2

REPORT INFORMATION
  Report Type: 
  Country: None (occurrence: None)
  Receive Date: 20100624
  Receipt Date: 20100129
  Transmission Date: 20101027
  Serious: Yes (Death)
  Sender: FDA-Public Use
  Company Number: US-MYLANLABS-2010S1000690

PATIENT
  Age: 66 Year
  Sex: Female

DRUGS (10)
  1. CLOZAPINE [Suspect]
     Indication: SCHIZOPHRENIA
     Route: 048
  2. CLOZAPINE [Suspect]
     Route: 048
  3. FLUOXETINE HCL [Concomitant]
  4. ALENDRONATE [Concomitant]
  5. BENAZEPRIL HYDROCHLORIDE [Concomitant]
  6. AMLODIPINE [Concomitant]
  7. ASPIRIN [Concomitant]
  8. ATENOLOL [Concomitant]
  9. AVANDIA [Concomitant]
  10. CEPHALEXIN [Concomitant]

REACTIONS (1)
  - MYOCARDIAL INFARCTION [None]
